FAERS Safety Report 5512348-8 (Version None)
Quarter: 2007Q4

REPORT INFORMATION
  Report Type: 
  Country: None (occurrence: None)
  Receive Date: 20071107
  Receipt Date: 20071022
  Transmission Date: 20080405
  Serious: Yes (Other)
  Sender: FDA-Public Use
  Company Number: 2007BM000148

PATIENT
  Age: 38 Year
  Sex: Male

DRUGS (4)
  1. PREDNISONE [Suspect]
     Indication: RENAL TRANSPLANT
     Dosage: 60 MG QD
     Dates: start: 20040501
  2. PREDNISOLONE [Suspect]
  3. CYCLOSPORINE [Concomitant]
  4. MYCOPHENOLATE MOFETIL [Concomitant]

REACTIONS (3)
  - ANAEMIA [None]
  - CYTOMEGALOVIRUS INFECTION [None]
  - GUILLAIN-BARRE SYNDROME [None]
